FAERS Safety Report 8493075-4 (Version None)
Quarter: 2012Q2

REPORT INFORMATION
  Report Type: 
  Country: None (occurrence: None)
  Receive Date: 20120627
  Receipt Date: 20120615
  Transmission Date: 20120825
  Serious: Yes (Hospitalization)
  Sender: FDA-Public Use
  Company Number: 2012MA007582

PATIENT
  Age: 65 Year

DRUGS (3)
  1. SUDAFED 12 HOUR [Concomitant]
  2. IBUPROFEN [Suspect]
     Indication: JOINT STIFFNESS
     Dosage: 400 MG; ;PO
     Route: 048
     Dates: start: 20120501, end: 20120605
  3. DICLOFENAC SODIUM [Suspect]
     Indication: JOINT STIFFNESS
     Dosage: 50 MG;QD;PO
     Route: 048
     Dates: start: 20120401, end: 20120604

REACTIONS (4)
  - ULCER [None]
  - HAEMOGLOBIN DECREASED [None]
  - MALAISE [None]
  - FATIGUE [None]
